FAERS Safety Report 15272449 (Version 2)
Quarter: 2019Q1

REPORT INFORMATION
  Report Type: Spontaneous
  Country: US (occurrence: US)
  Receive Date: 20180813
  Receipt Date: 20190118
  Transmission Date: 20190417
  Serious: Yes (Hospitalization)
  Sender: FDA-Public Use
  Company Number: US-OTSUKA-2018_023093

PATIENT
  Age: 40 Year
  Sex: Female

DRUGS (5)
  1. ABILIFY [Suspect]
     Active Substance: ARIPIPRAZOLE
     Indication: ANXIETY
  2. ABILIFY [Suspect]
     Active Substance: ARIPIPRAZOLE
     Indication: SCHIZOPHRENIA
     Dosage: 30 MG, QD
     Route: 065
     Dates: end: 201707
  3. ABILIFY [Suspect]
     Active Substance: ARIPIPRAZOLE
     Indication: MAJOR DEPRESSION
  4. ABILIFY [Suspect]
     Active Substance: ARIPIPRAZOLE
     Indication: BIPOLAR DISORDER
  5. ABILIFY [Suspect]
     Active Substance: ARIPIPRAZOLE
     Indication: OBSESSIVE-COMPULSIVE DISORDER

REACTIONS (15)
  - Mental disorder [Unknown]
  - Anhedonia [Unknown]
  - Condition aggravated [Recovered/Resolved]
  - Economic problem [Unknown]
  - Eating disorder [Not Recovered/Not Resolved]
  - Obsessive-compulsive disorder [Unknown]
  - Homeless [Unknown]
  - Condition aggravated [Unknown]
  - Injury [Unknown]
  - Compulsive shopping [Not Recovered/Not Resolved]
  - Impulse-control disorder [Unknown]
  - Loss of employment [Unknown]
  - Product use in unapproved indication [Unknown]
  - Gambling disorder [Recovered/Resolved]
  - Compulsive sexual behaviour [Not Recovered/Not Resolved]

NARRATIVE: CASE EVENT DATE: 201501
